FAERS Safety Report 24653254 (Version 2)
Quarter: 2024Q4

REPORT INFORMATION
  Report Type: Spontaneous
  Country: JP (occurrence: JP)
  Receive Date: 20241122
  Receipt Date: 20241202
  Transmission Date: 20250115
  Serious: Yes (Hospitalization)
  Sender: JOHNSON AND JOHNSON
  Company Number: JP-JNJFOC-20241134898

PATIENT
  Sex: Male

DRUGS (19)
  1. OPSUMIT [Suspect]
     Active Substance: MACITENTAN
     Indication: Pulmonary arterial hypertension
     Route: 048
  2. OPSUMIT [Suspect]
     Active Substance: MACITENTAN
     Route: 048
  3. TADALAFIL [Concomitant]
     Active Substance: TADALAFIL
     Indication: Pulmonary arterial hypertension
     Route: 048
  4. TADALAFIL [Concomitant]
     Active Substance: TADALAFIL
     Route: 048
  5. SELEXIPAG [Concomitant]
     Active Substance: SELEXIPAG
     Indication: Pulmonary arterial hypertension
     Route: 048
  6. SELEXIPAG [Concomitant]
     Active Substance: SELEXIPAG
     Dosage: DOSE UNKNOWN?GRADUALLY INCREASED
     Route: 048
  7. SELEXIPAG [Concomitant]
     Active Substance: SELEXIPAG
     Route: 048
  8. SELEXIPAG [Concomitant]
     Active Substance: SELEXIPAG
     Dosage: DOSE UNKNOWN?DECREASED
     Route: 048
  9. FUROSEMIDE [Concomitant]
     Active Substance: FUROSEMIDE
     Dosage: 40-80MG
     Route: 048
  10. FUROSEMIDE [Concomitant]
     Active Substance: FUROSEMIDE
     Route: 048
  11. FUROSEMIDE [Concomitant]
     Active Substance: FUROSEMIDE
  12. TOLVAPTAN [Concomitant]
     Active Substance: TOLVAPTAN
     Route: 048
  13. TOLVAPTAN [Concomitant]
     Active Substance: TOLVAPTAN
     Route: 048
  14. TOLVAPTAN [Concomitant]
     Active Substance: TOLVAPTAN
     Route: 048
  15. EPLERENONE [Concomitant]
     Active Substance: EPLERENONE
     Route: 048
  16. WARFARIN POTASSIUM [Concomitant]
     Active Substance: WARFARIN POTASSIUM
     Indication: Product used for unknown indication
     Route: 048
  17. ESOMEPRAZOLE [Concomitant]
     Active Substance: ESOMEPRAZOLE
     Route: 048
  18. OXYGEN [Concomitant]
     Active Substance: OXYGEN
     Dosage: DOSE UNKNOWN
     Route: 055
  19. OXYGEN [Concomitant]
     Active Substance: OXYGEN
     Route: 055

REACTIONS (4)
  - Gait inability [Recovering/Resolving]
  - Dyspnoea at rest [Recovering/Resolving]
  - Pulmonary arterial hypertension [Recovering/Resolving]
  - Therapeutic product effect incomplete [Unknown]
